FAERS Safety Report 5538218-7 (Version None)
Quarter: 2007Q4

REPORT INFORMATION
  Report Type: 
  Country: None (occurrence: None)
  Receive Date: 20071123
  Receipt Date: 20061017
  Transmission Date: 20080405
  Serious: Yes (Other)
  Sender: FDA-Public Use
  Company Number: US-JNJFOC-20061004147

PATIENT
  Age: 48 Year
  Sex: Female
  Weight: 97.977 kg

DRUGS (12)
  1. LEVAQUIN [Suspect]
     Indication: KIDNEY INFECTION
     Dosage: 500 MG, 1 IN 1 DAY, ORAL
     Route: 048
     Dates: start: 20060808, end: 20060922
  2. BYETTA [Suspect]
     Indication: TYPE 2 DIABETES MELLITUS
     Dosage: 5 UG, 2 IN 1 DAY, SUBCUTANEOUS ; 10 UG, 2 IN 1 DAY, SUBCUTANEOUS
     Route: 058
     Dates: start: 20060101, end: 20060101
  3. BYETTA [Suspect]
     Indication: TYPE 2 DIABETES MELLITUS
     Dosage: 5 UG, 2 IN 1 DAY, SUBCUTANEOUS ; 10 UG, 2 IN 1 DAY, SUBCUTANEOUS
     Route: 058
     Dates: start: 20060101
  4. ACTOS (PIOGLITAZONE) UNSPECIFIED [Concomitant]
  5. TRAZODONE (TRAZODONE) UNSPECIFIED [Concomitant]
  6. EFFEXOR (VENLAFAXINE HYDROCHLORIDE) UNSPECIFIED [Concomitant]
  7. CYMBALTA (ANTIDEPRESSANTS) UNSPECIFIED [Concomitant]
  8. NEXIUM (ESOMEPRAZOLE) UNSPECIFIED [Concomitant]
  9. SINGULAR (MONTELUKAST SODIUM) UNSPECIFIED [Concomitant]
  10. HORMONE (ALL OTHER THERAPEUTIC PRODUCTS) UNSPECIFIED [Concomitant]
  11. INHALER (ANTI-ASTHMATICS) UNSPECIFIED [Concomitant]
  12. AMARYL (GLIMEPIRIDE) UNSPECIFIED [Concomitant]

REACTIONS (3)
  - BLOOD GLUCOSE DECREASED [None]
  - BLOOD GLUCOSE INCREASED [None]
  - NAUSEA [None]
